FAERS Safety Report 20115635 (Version 1)
Quarter: 2021Q4

REPORT INFORMATION
  Report Type: Spontaneous
  Country: US (occurrence: US)
  Receive Date: 20211126
  Receipt Date: 20211126
  Transmission Date: 20220303
  Serious: Yes (Hospitalization)
  Sender: FDA-Public Use
  Company Number: US-SABAL THERAPEUTICS LLC-2021-ATH-000008

PATIENT
  Age: 29 Year
  Sex: Female

DRUGS (1)
  1. OZOBAX [Suspect]
     Active Substance: BACLOFEN
     Indication: Muscle spasms
     Dosage: 20 MG, TID

REACTIONS (1)
  - Neurotoxicity [Recovered/Resolved]
